FAERS Safety Report 7281501-8 (Version None)
Quarter: 2011Q1

REPORT INFORMATION
  Report Type: 
  Country: None (occurrence: None)
  Receive Date: 20110208
  Receipt Date: 20110127
  Transmission Date: 20110831
  Serious: Yes (Hospitalization, Other)
  Sender: FDA-Public Use
  Company Number: PHHY2011SE08069

PATIENT
  Sex: Male

DRUGS (1)
  1. COMTESS [Suspect]
     Indication: PARKINSON'S DISEASE
     Dosage: UNK

REACTIONS (2)
  - CHOLESTASIS [None]
  - JAUNDICE [None]
